FAERS Safety Report 12633757 (Version 1)
Quarter: 2016Q3

REPORT INFORMATION
  Report Type: Spontaneous
  Country: US (occurrence: None)
  Receive Date: 20160808
  Receipt Date: 20160808
  Transmission Date: 20161109
  Serious: Yes (Hospitalization)
  Sender: FDA-Public Use
  Company Number: None

PATIENT
  Age: 92 Year
  Sex: Male
  Weight: 56.1 kg

DRUGS (1)
  1. AMIODARONE [Suspect]
     Active Substance: AMIODARONE
     Indication: ATRIAL FIBRILLATION
     Route: 048
     Dates: start: 20151028, end: 20160222

REACTIONS (5)
  - Lethargy [None]
  - Decreased appetite [None]
  - Confusional state [None]
  - Fatigue [None]
  - Hyperthyroidism [None]

NARRATIVE: CASE EVENT DATE: 20160217
